FAERS Safety Report 25189329 (Version 1)
Quarter: 2025Q2

REPORT INFORMATION
  Report Type: Spontaneous
  Country: US (occurrence: US)
  Receive Date: 20250411
  Receipt Date: 20250411
  Transmission Date: 20250717
  Serious: Yes (Hospitalization, Other)
  Sender: CHEPLAPHARM
  Company Number: US-ASTRAZENECA-202503USA027072US

PATIENT
  Age: 82 Year
  Sex: Male

DRUGS (1)
  1. QUETIAPINE [Suspect]
     Active Substance: QUETIAPINE
     Dates: start: 202410

REACTIONS (11)
  - Fall [Recovering/Resolving]
  - Rib fracture [Recovering/Resolving]
  - Haematoma [Recovering/Resolving]
  - Cardiac failure congestive [Not Recovered/Not Resolved]
  - Agitation [Unknown]
  - Eating disorder [Not Recovered/Not Resolved]
  - Lethargy [Unknown]
  - Hypersomnia [Not Recovered/Not Resolved]
  - Overdose [Not Recovered/Not Resolved]
  - Dysstasia [Unknown]
  - Delusion of replacement [Unknown]

NARRATIVE: CASE EVENT DATE: 20250301
